FAERS Safety Report 21748706 (Version 1)
Quarter: 2022Q4

REPORT INFORMATION
  Report Type: Spontaneous
  Country: FR (occurrence: FR)
  Receive Date: 20221219
  Receipt Date: 20221219
  Transmission Date: 20230113
  Serious: Yes (Hospitalization)
  Sender: FDA-Public Use
  Company Number: None

PATIENT
  Age: 85 Year
  Sex: Female
  Weight: 60.8 kg

DRUGS (5)
  1. ZOPICLONE [Suspect]
     Active Substance: ZOPICLONE
     Indication: Sleep disorder therapy
     Dosage: UNK, LONG TERM
     Route: 048
  2. PAROXETINE [Suspect]
     Active Substance: PAROXETINE
     Indication: Depression
     Dosage: LONG TERM, 20 MILLIGRAM, QD
     Route: 048
     Dates: end: 202203
  3. OXAZEPAM [Suspect]
     Active Substance: OXAZEPAM
     Indication: Psychotic disorder
     Dosage: LONG TERM, 55 MILLIGRAM, QD
     Route: 048
  4. LOXAPINE [Suspect]
     Active Substance: LOXAPINE
     Indication: Psychotic disorder
     Dosage: 10 MILLIGRAM, QD
     Route: 048
     Dates: start: 20220306, end: 20220309
  5. HALDOL [Suspect]
     Active Substance: HALOPERIDOL
     Indication: Psychotic disorder
     Dosage: 10 MILLIGRAM, QD
     Route: 048
     Dates: start: 20220306, end: 20220309

REACTIONS (2)
  - Extrapyramidal disorder [Recovered/Resolved]
  - Behaviour disorder [Recovered/Resolved]
